FAERS Safety Report 5857449-X (Version None)
Quarter: 2008Q3

REPORT INFORMATION
  Report Type: 
  Country: None (occurrence: None)
  Receive Date: 20080826
  Receipt Date: 20080816
  Transmission Date: 20090109
  Serious: Yes (Other)
  Sender: FDA-Public Use
  Company Number: DE-WYE-H05575508

PATIENT
  Sex: Male

DRUGS (2)
  1. RAPAMUNE [Suspect]
     Indication: PROPHYLAXIS AGAINST TRANSPLANT REJECTION
     Route: 048
     Dates: start: 20071228
  2. PROGRAF [Concomitant]
     Dosage: 1-0-1
     Route: 065
     Dates: start: 20071122

REACTIONS (1)
  - HEPATIC NEOPLASM MALIGNANT RECURRENT [None]
